FAERS Safety Report 6406889-9 (Version None)
Quarter: 2009Q4

REPORT INFORMATION
  Report Type: 
  Country: None (occurrence: None)
  Receive Date: 20091020
  Receipt Date: 20091005
  Transmission Date: 20100525
  Serious: Yes (Other)
  Sender: FDA-Public Use
  Company Number: PL-ROCHE-662999

PATIENT
  Age: 12 Year
  Sex: Female

DRUGS (5)
  1. DIAZEPAM [Suspect]
     Route: 042
  2. VALPROIC ACID [Suspect]
     Route: 065
  3. TOPIRAMATE [Suspect]
     Route: 065
  4. PARATHYROID HORMONE [Suspect]
     Route: 065
  5. DEXAMETHASONE [Suspect]
     Route: 048

REACTIONS (2)
  - DRUG RESISTANCE [None]
  - HEMIPARESIS [None]
